FAERS Safety Report 11874299 (Version 2)
Quarter: 2016Q1

REPORT INFORMATION
  Report Type: Spontaneous
  Country: US (occurrence: US)
  Receive Date: 20151229
  Receipt Date: 20160107
  Transmission Date: 20160526
  Serious: Yes (Death)
  Sender: FDA-Public Use
  Company Number: US-ROCHE-1654560

PATIENT
  Sex: Female
  Weight: 49.49 kg

DRUGS (9)
  1. HEPARIN FLUSH [Concomitant]
     Dosage: 250 UNITS DAILY AT 0600
     Route: 065
     Dates: start: 20151209
  2. LEVOTHYROXINE. [Concomitant]
     Active Substance: LEVOTHYROXINE
     Dosage: DAILY AT 0600
     Route: 065
  3. MIRALAX [Concomitant]
     Active Substance: POLYETHYLENE GLYCOL 3350
  4. ESBRIET [Suspect]
     Active Substance: PIRFENIDONE
     Indication: IDIOPATHIC PULMONARY FIBROSIS
     Dosage: 3 CAPSULES 3 TIMES A DAY
     Route: 048
     Dates: start: 20151001
  5. ESBRIET [Suspect]
     Active Substance: PIRFENIDONE
     Route: 048
  6. POLYETHYLENE GLYCOL [Concomitant]
     Active Substance: POLYETHYLENE GLYCOLS
  7. PRAVASTATIN [Concomitant]
     Active Substance: PRAVASTATIN\PRAVASTATIN SODIUM
     Dosage: QHS
     Route: 065
  8. FUROSEMIDE. [Concomitant]
     Active Substance: FUROSEMIDE
     Route: 065
  9. SENNA [Concomitant]
     Active Substance: SENNA LEAF\SENNOSIDES\SENNOSIDES A AND B

REACTIONS (5)
  - Right ventricular failure [Fatal]
  - Respiratory failure [Fatal]
  - Nausea [Unknown]
  - Dizziness [Unknown]
  - Headache [Unknown]
